FAERS Safety Report 4914819-1 (Version None)
Quarter: 2006Q1

REPORT INFORMATION
  Report Type: 
  Country: None (occurrence: None)
  Receive Date: 20060113
  Receipt Date: 20051021
  Transmission Date: 20060701
  Serious: No
  Sender: FDA-Public Use
  Company Number: 2005SP003648

PATIENT
  Age: 47 Year
  Sex: Female
  Weight: 56.6996 kg

DRUGS (5)
  1. LUNESTA [Suspect]
     Dosage: 1 MG ;HS;ORAL, 2 MG; HS; ORAL; 3 MG; HS ;ORAL
     Dates: start: 20050101, end: 20050101
  2. CARDIZEM [Concomitant]
  3. RELAFEN [Concomitant]
  4. PLAVIX [Concomitant]
  5. SALICYLIC ACID [Concomitant]

REACTIONS (2)
  - DRUG INEFFECTIVE [None]
  - INSOMNIA [None]
